FAERS Safety Report 14739236 (Version 1)
Quarter: 2018Q2

REPORT INFORMATION
  Report Type: Spontaneous
  Country: DK (occurrence: DK)
  Receive Date: 20180410
  Receipt Date: 20180410
  Transmission Date: 20180711
  Serious: Yes (Hospitalization)
  Sender: FDA-Public Use
  Company Number: DK-CONCORDIA PHARMACEUTICALS INC.-E2B_00010928

PATIENT
  Age: 77 Year
  Sex: Female

DRUGS (1)
  1. PREDNISOLONE. [Suspect]
     Active Substance: PREDNISOLONE
     Indication: NASAL POLYPS
     Dosage: DOSIS: 50 MG DAGLIGT I 5 DAGE. DERP? NEDTRAPNING.?STYRKE: 25 MG.
     Route: 048
     Dates: start: 20180205, end: 20180215

REACTIONS (1)
  - Thrombosis [Recovering/Resolving]

NARRATIVE: CASE EVENT DATE: 20180205
